FAERS Safety Report 8006008-1 (Version None)
Quarter: 2011Q4

REPORT INFORMATION
  Report Type: 
  Country: None (occurrence: None)
  Receive Date: 20111226
  Receipt Date: 20111216
  Transmission Date: 20120403
  Serious: Yes (Hospitalization, Other)
  Sender: FDA-Public Use
  Company Number: US-AMGEN-USASP2011067303

PATIENT
  Age: 54 Year
  Sex: Male

DRUGS (2)
  1. ENBREL [Suspect]
     Indication: PSORIATIC ARTHROPATHY
     Dosage: UNK
     Dates: start: 20050101
  2. ENBREL [Suspect]
     Indication: PSORIASIS

REACTIONS (9)
  - NECK INJURY [None]
  - ELBOW OPERATION [None]
  - RIB FRACTURE [None]
  - ARTHRITIS [None]
  - SPINAL DISORDER [None]
  - UPPER LIMB FRACTURE [None]
  - SKULL FRACTURE [None]
  - FALL [None]
  - PHYSICAL ASSAULT [None]
